FAERS Safety Report 21463454 (Version 2)
Quarter: 2022Q4

REPORT INFORMATION
  Report Type: Spontaneous
  Country: JP (occurrence: JP)
  Receive Date: 20221017
  Receipt Date: 20221019
  Transmission Date: 20230112
  Serious: Yes (Disabling, Other)
  Sender: FDA-Public Use
  Company Number: JP-SA-SAC20221007001198

PATIENT
  Age: 53 Year
  Sex: Female

DRUGS (4)
  1. OXALIPLATIN [Suspect]
     Active Substance: OXALIPLATIN
     Indication: Gastric cancer
     Dosage: UNK
     Route: 065
     Dates: start: 20220809
  2. NIVOLUMAB [Suspect]
     Active Substance: NIVOLUMAB
     Indication: Gastric cancer
     Dosage: UNK
     Route: 065
     Dates: start: 20220809
  3. GIMERACIL\OTERACIL\TEGAFUR [Concomitant]
     Active Substance: GIMERACIL\OTERACIL\TEGAFUR
     Dates: start: 20220809
  4. GIMERACIL\OTERACIL\TEGAFUR [Concomitant]
     Active Substance: GIMERACIL\OTERACIL\TEGAFUR
     Dosage: UNK
     Route: 048
     Dates: start: 20220809

REACTIONS (2)
  - Enterocolitis [Recovering/Resolving]
  - Perforation [Recovering/Resolving]

NARRATIVE: CASE EVENT DATE: 20220816
